FAERS Safety Report 15820748 (Version 3)
Quarter: 2019Q1

REPORT INFORMATION
  Report Type: Spontaneous
  Country: NO (occurrence: NO)
  Receive Date: 20190114
  Receipt Date: 20190115
  Transmission Date: 20190417
  Serious: Yes (Death, Other)
  Sender: FDA-Public Use
  Company Number: NO-009507513-1901NOR002461

PATIENT
  Age: 71 Year
  Sex: Female

DRUGS (1)
  1. PEMBROLIZUMAB. [Suspect]
     Active Substance: PEMBROLIZUMAB
     Indication: MALIGNANT MELANOMA
     Dosage: 150 MG EVERY 3RD WEEK
     Route: 042
     Dates: start: 20180124, end: 20181015

REACTIONS (3)
  - Arthritis [Recovered/Resolved]
  - Dermatitis [Recovered/Resolved]
  - Drug-induced liver injury [Fatal]

NARRATIVE: CASE EVENT DATE: 20180912
